FAERS Safety Report 4358402-8 (Version None)
Quarter: 2004Q2

REPORT INFORMATION
  Report Type: 
  Country: None (occurrence: None)
  Receive Date: 20040511
  Receipt Date: 20040427
  Transmission Date: 20050107
  Serious: Yes (Hospitalization)
  Sender: FDA-Public Use
  Company Number: US-JNJFOC-20040405956

PATIENT
  Age: 70 Year
  Sex: Male
  Weight: 66.2252 kg

DRUGS (17)
  1. INFLIXIMAB (INFLIXIMAB, RECOMBINANT) LYOPHILIZED POWDER [Suspect]
     Indication: RHEUMATOID ARTHRITIS
     Dosage: INTRAVENOUS
     Route: 042
     Dates: start: 20020805, end: 20020819
  2. ADVAIR (SERETIDE MITE) [Concomitant]
  3. COMBIVENT [Concomitant]
  4. ALBUTEROL [Concomitant]
  5. ATROVENT [Concomitant]
  6. LESCOL [Concomitant]
  7. GLUCOPHAGE [Concomitant]
  8. PREVACID [Concomitant]
  9. VICODIN [Concomitant]
  10. IMDUR [Concomitant]
  11. SULFASALAZINE [Concomitant]
  12. GLYBURIDE [Concomitant]
  13. LASIX [Concomitant]
  14. POTASSIUM (POTASSIUM) [Concomitant]
  15. FOLIC ACID [Concomitant]
  16. VITAMIN E [Concomitant]
  17. OMEGA (OMEGA) [Concomitant]

REACTIONS (8)
  - CHRONIC OBSTRUCTIVE AIRWAYS DISEASE [None]
  - CONDITION AGGRAVATED [None]
  - HAEMATOCRIT DECREASED [None]
  - HAEMOGLOBIN DECREASED [None]
  - LUNG DISORDER [None]
  - RESPIRATORY FAILURE [None]
  - SCAR [None]
  - WHITE BLOOD CELL COUNT INCREASED [None]
